FAERS Safety Report 5607486-5 (Version None)
Quarter: 2008Q1

REPORT INFORMATION
  Report Type: 
  Country: None (occurrence: None)
  Receive Date: 20080125
  Receipt Date: 20080111
  Transmission Date: 20080703
  Serious: Yes (Life-Threatening, Hospitalization, Other)
  Sender: FDA-Public Use
  Company Number: 2008P1000005

PATIENT
  Sex: Male

DRUGS (5)
  1. BUSULFAN (BUSULFAN) [Suspect]
     Indication: STEM CELL TRANSPLANT
     Dosage: 27 ML; X1; IV, 6 ML; X1; IV, 9 ML; X1, IV
     Route: 042
     Dates: start: 20070519, end: 20070519
  2. BUSULFAN (BUSULFAN) [Suspect]
     Indication: STEM CELL TRANSPLANT
     Dosage: 27 ML; X1; IV, 6 ML; X1; IV, 9 ML; X1, IV
     Route: 042
     Dates: start: 20070520, end: 20070520
  3. BUSULFAN (BUSULFAN) [Suspect]
     Indication: STEM CELL TRANSPLANT
     Dosage: 27 ML; X1; IV, 6 ML; X1; IV, 9 ML; X1, IV
     Route: 042
     Dates: start: 20070521, end: 20070521
  4. FLUDARABINE PHOSPHATE [Concomitant]
  5. VALPROATE SODIUM [Concomitant]

REACTIONS (12)
  - ACUTE GRAFT VERSUS HOST DISEASE [None]
  - ANOREXIA [None]
  - CELLULITIS [None]
  - DIARRHOEA [None]
  - ESCHERICHIA SEPSIS [None]
  - ILEUS [None]
  - MALAISE [None]
  - NAUSEA [None]
  - PNEUMONIA [None]
  - SEPTIC SHOCK [None]
  - STEM CELL TRANSPLANT [None]
  - STOMATITIS [None]
